FAERS Safety Report 7693870-5 (Version None)
Quarter: 2011Q3

REPORT INFORMATION
  Report Type: 
  Country: None (occurrence: None)
  Receive Date: 20110815
  Receipt Date: 20110808
  Transmission Date: 20111222
  Serious: Yes (Life-Threatening, Hospitalization)
  Sender: FDA-Public Use
  Company Number: 2011S1000057

PATIENT
  Age: 76 Year
  Sex: Male
  Weight: 78.1094 kg

DRUGS (6)
  1. ACETAMINOPHEN AND HYDROCODONE BITARTRATE [Concomitant]
  2. METOPROLOL [Concomitant]
  3. LISINOPRIL [Concomitant]
  4. KRYSTEXXA [Suspect]
     Indication: GOUT
     Dosage: 8 MG;X1;IV
     Route: 042
     Dates: start: 20110722, end: 20110722
  5. METHYLPREDNISOLONE [Concomitant]
  6. ALLOPURINOL [Concomitant]

REACTIONS (7)
  - HAEMOLYTIC ANAEMIA [None]
  - DEPRESSED LEVEL OF CONSCIOUSNESS [None]
  - CONVULSION [None]
  - BRAIN NATRIURETIC PEPTIDE INCREASED [None]
  - URINARY INCONTINENCE [None]
  - SOMNOLENCE [None]
  - BLOOD CREATININE INCREASED [None]
